FAERS Safety Report 8590473-5 (Version None)
Quarter: 2012Q3

REPORT INFORMATION
  Report Type: 
  Country: None (occurrence: None)
  Receive Date: 20120813
  Receipt Date: 20120807
  Transmission Date: 20120928
  Serious: Yes (Disabling, Other)
  Sender: FDA-Public Use
  Company Number: US-PFIZER INC-2012159663

PATIENT
  Age: 52 Year
  Sex: Male
  Weight: 100 kg

DRUGS (4)
  1. NEURONTIN [Suspect]
     Dosage: 400 MG, 3X/DAY
     Dates: start: 20090101, end: 20090101
  2. NEURONTIN [Suspect]
     Indication: MULTIPLE SCLEROSIS
     Dosage: 1600 MG, 3X/DAY
     Route: 048
     Dates: start: 20020101, end: 20090101
  3. HYDROCODONE [Concomitant]
     Indication: BACK INJURY
     Dosage: UNK
  4. NEURONTIN [Suspect]
     Dosage: UNKNOWN DOSE THREE TIMES A DAY
     Dates: start: 20090101, end: 20090101

REACTIONS (1)
  - MULTIPLE SCLEROSIS [None]
